FAERS Safety Report 9539581 (Version 1)
Quarter: 2013Q2

REPORT INFORMATION
  Report Type: Spontaneous
  Country: US (occurrence: None)
  Receive Date: 20130521
  Receipt Date: 20130521
  Transmission Date: 20140414
  Serious: Yes (Other)
  Sender: FDA-Public Use
  Company Number: 1000042543

PATIENT
  Age: 57 Year
  Sex: Female

DRUGS (13)
  1. TUDORZA PRESSAIR [Suspect]
     Indication: CHRONIC OBSTRUCTIVE PULMONARY DISEASE
     Dosage: 400 MCG, 2 IN 1 D, RESPIRATORY
     Route: 055
     Dates: start: 20130207
  2. CLARITIN [Concomitant]
  3. ADVAIR [Concomitant]
  4. ASPIRIN [Concomitant]
  5. LORAZEPAM [Concomitant]
  6. LOSARTAN [Concomitant]
  7. ATORVASTATIN [Concomitant]
  8. CLOPIDOGREL [Concomitant]
  9. VENTOLIN HFA [Concomitant]
  10. CENTRUM SILVER [Concomitant]
  11. IRON [Concomitant]
  12. OS-CAL [Concomitant]
  13. VITAMIN [Concomitant]

REACTIONS (1)
  - Tongue blistering [None]
